FAERS Safety Report 19009208 (Version 1)
Quarter: 2021Q1

REPORT INFORMATION
  Report Type: Spontaneous
  Country: FR (occurrence: FR)
  Receive Date: 20210315
  Receipt Date: 20210315
  Transmission Date: 20210420
  Serious: Yes (Other)
  Sender: FDA-Public Use
  Company Number: FR-ABBVIE-21K-056-3811817-00

PATIENT
  Age: 57 Year
  Sex: Male

DRUGS (4)
  1. RINVOQ [Suspect]
     Active Substance: UPADACITINIB
     Indication: RHEUMATOID ARTHRITIS
     Route: 048
     Dates: start: 20210115
  2. THIOCOLCHICOSIDE [Suspect]
     Active Substance: THIOCOLCHICOSIDE
     Indication: PAIN
     Route: 048
     Dates: start: 20210223, end: 20210225
  3. PYOSTACINE [Suspect]
     Active Substance: PRISTINAMYCIN
     Indication: SKIN INFECTION
     Route: 048
     Dates: start: 20210223, end: 20210225
  4. PREDNISONE. [Suspect]
     Active Substance: PREDNISONE
     Indication: RHEUMATOID ARTHRITIS
     Route: 048
     Dates: start: 20210224

REACTIONS (2)
  - Malaise [Recovered/Resolved]
  - Withdrawal hypertension [Recovered/Resolved]

NARRATIVE: CASE EVENT DATE: 20210224
